FAERS Safety Report 8915441 (Version 1)
Quarter: 2012Q4

REPORT INFORMATION
  Report Type: 
  Country: US (occurrence: US)
  Receive Date: 20121119
  Receipt Date: 20121119
  Transmission Date: 20130627
  Serious: Yes (Hospitalization)
  Sender: FDA-Public Use
  Company Number: US-PFIZER INC-2012287714

PATIENT
  Age: 67 Year
  Sex: Male
  Weight: 83 kg

DRUGS (4)
  1. LIPITOR [Suspect]
     Indication: BLOOD CHOLESTEROL INCREASED
     Dosage: 10 mg, daily
     Dates: start: 1996, end: 201207
  2. LISINOPRIL [Concomitant]
     Indication: BLOOD PRESSURE HIGH
     Dosage: 5 mg, daily
  3. FLOVENT [Concomitant]
     Indication: ASTHMA
     Dosage: two puffs, 2x/day
  4. SEREVENT [Concomitant]
     Indication: ASTHMA
     Dosage: UNK, 2x/day

REACTIONS (1)
  - Myocardial infarction [Unknown]
